FAERS Safety Report 6055393-9 (Version None)
Quarter: 2009Q1

REPORT INFORMATION
  Report Type: 
  Country: None (occurrence: None)
  Receive Date: 20090128
  Receipt Date: 20090119
  Transmission Date: 20090719
  Serious: Yes (Hospitalization, Other)
  Sender: FDA-Public Use
  Company Number: US-JNJFOC-20090104078

PATIENT
  Sex: Female
  Weight: 71.43 kg

DRUGS (28)
  1. LEVAQUIN [Suspect]
     Indication: INFECTION PROPHYLAXIS
     Route: 065
  2. LOVENOX [Suspect]
     Indication: THROMBOSIS
     Route: 065
  3. PEPCID [Suspect]
     Indication: ABDOMINAL PAIN
     Route: 065
  4. GLEEVEC [Suspect]
     Indication: BREAST CANCER METASTATIC
     Route: 048
  5. K-CAP [Suspect]
     Indication: ELECTROLYTE SUBSTITUTION THERAPY
     Route: 065
  6. FLAGYL [Suspect]
     Indication: CLOSTRIDIUM DIFFICILE COLITIS
     Route: 065
  7. IMDUR [Suspect]
     Indication: CORONARY ARTERY DISEASE
     Route: 065
  8. DILAUDID [Suspect]
     Indication: PAIN
     Route: 065
  9. MEPHYTON [Suspect]
     Indication: CONFUSIONAL STATE
     Route: 065
  10. COUMADIN [Suspect]
     Indication: THROMBOSIS
     Route: 065
  11. GEMZAR [Concomitant]
     Route: 065
  12. LORTAB [Concomitant]
     Route: 065
  13. ATIVAN [Concomitant]
     Route: 065
  14. NEURONTIN [Concomitant]
     Route: 065
  15. PHENARGAN [Concomitant]
     Route: 065
  16. PREDNISONE [Concomitant]
     Route: 065
  17. GLUCOPHAGE [Concomitant]
     Route: 065
  18. GLUCOTROL [Concomitant]
     Route: 065
  19. INSULIN [Concomitant]
     Route: 065
  20. ELAVIL [Concomitant]
     Route: 065
  21. THEOPHYLLINE [Concomitant]
     Route: 065
  22. VENTOLIN [Concomitant]
     Route: 065
  23. NORVASC [Concomitant]
     Route: 065
  24. PULMICORT-100 [Concomitant]
     Route: 065
  25. KYTRIL [Concomitant]
     Route: 065
  26. LACTULOSE [Concomitant]
     Route: 065
  27. PROTONIX [Concomitant]
     Route: 065
  28. DILANTIN [Concomitant]
     Route: 065

REACTIONS (6)
  - CHEST PAIN [None]
  - CLOSTRIDIUM DIFFICILE COLITIS [None]
  - CONFUSIONAL STATE [None]
  - RENAL FAILURE ACUTE [None]
  - THROMBOCYTOPENIA [None]
  - THROMBOSIS [None]
